FAERS Safety Report 12608469 (Version 7)
Quarter: 2018Q1

REPORT INFORMATION
  Report Type: Report from Study
  Country: PL (occurrence: PL)
  Receive Date: 20160729
  Receipt Date: 20180321
  Transmission Date: 20180508
  Serious: Yes (Other)
  Sender: FDA-Public Use
  Company Number: PHHO2016PL008593

PATIENT
  Age: 39 Year
  Sex: Female
  Weight: 75 kg

DRUGS (7)
  1. VIGANTOLETTEN [Concomitant]
     Active Substance: CHOLECALCIFEROL
     Indication: VITAMIN D DEFICIENCY
     Dosage: (1000 I.M, 1X1 PER DAY)
     Route: 030
     Dates: start: 20130618
  2. JODID [Concomitant]
     Active Substance: IODINE
     Indication: PROPHYLAXIS
     Dosage: 200 UG, UNK (1 X1 ) 6WEEKLY)
     Route: 065
     Dates: start: 20160620, end: 20160722
  3. PASIREOTIDE. [Suspect]
     Active Substance: PASIREOTIDE
     Indication: ACROMEGALY
     Dosage: 40 MG, (1X1, EVERY FOUR WEEKS)
     Route: 030
     Dates: start: 20151118, end: 20160603
  4. LANREOTIDE [Concomitant]
     Active Substance: LANREOTIDE
     Indication: PRODUCT USED FOR UNKNOWN INDICATION
     Dosage: 120 MG, UNK (EVERY 4 WEEKS)
     Route: 058
     Dates: start: 20160924
  5. EUTHYROX [Concomitant]
     Active Substance: LEVOTHYROXINE SODIUM
     Dosage: 112 MG
     Route: 048
     Dates: start: 20160620
  6. VIGANTOLETTEN [Concomitant]
     Active Substance: CHOLECALCIFEROL
     Dosage: 2000 U, QD
     Route: 030
     Dates: start: 20160620
  7. EUTHYROX [Concomitant]
     Active Substance: LEVOTHYROXINE SODIUM
     Indication: HYPOTHYROIDISM
     Dosage: 100 UG
     Route: 048
     Dates: start: 20131130, end: 20160615

REACTIONS (2)
  - Abortion spontaneous [Unknown]
  - Maternal exposure during pregnancy [Unknown]

NARRATIVE: CASE EVENT DATE: 20160720
